FAERS Safety Report 6039286-9 (Version None)
Quarter: 2009Q1

REPORT INFORMATION
  Report Type: 
  Country: None (occurrence: None)
  Receive Date: 20090115
  Receipt Date: 20090113
  Transmission Date: 20090719
  Serious: Yes (Death)
  Sender: FDA-Public Use
  Company Number: PHHY2008MX23648

PATIENT
  Age: 54 Year
  Sex: Male

DRUGS (1)
  1. EXFORGE [Suspect]
     Indication: HYPERTENSION
     Dosage: 160/5 MG DAILY
     Route: 048

REACTIONS (2)
  - HEAD INJURY [None]
  - ROAD TRAFFIC ACCIDENT [None]
